FAERS Safety Report 11811464 (Version 1)
Quarter: 2015Q4

REPORT INFORMATION
  Report Type: Spontaneous
  Country: DE (occurrence: DE)
  Receive Date: 20151208
  Receipt Date: 20151208
  Transmission Date: 20160305
  Serious: Yes (Death, Hospitalization, Other)
  Sender: FDA-Public Use
  Company Number: DE-CELGENE-062-50794-10071752

PATIENT
  Age: 76 Year
  Sex: Male
  Weight: 85 kg

DRUGS (6)
  1. VIDAZA [Suspect]
     Active Substance: AZACITIDINE
     Indication: ACUTE MYELOID LEUKAEMIA
     Dosage: 75 MILLIGRAM/SQ. METER
     Route: 058
     Dates: start: 20100201, end: 20100205
  2. VIDAZA [Suspect]
     Active Substance: AZACITIDINE
     Indication: MYELODYSPLASTIC SYNDROME
  3. GENTAMICIN. [Concomitant]
     Active Substance: GENTAMICIN
     Indication: NEUTROPENIA
     Route: 065
     Dates: start: 201002
  4. FORTUM [Concomitant]
     Active Substance: CEFTAZIDIME
     Indication: NEUTROPENIA
     Route: 065
     Dates: start: 201002
  5. RED BLOOD CELLS [Concomitant]
     Active Substance: HUMAN RED BLOOD CELL
     Indication: HAEMOCHROMATOSIS
     Route: 041
  6. ZIENAM [Concomitant]
     Active Substance: CILASTATIN SODIUM\IMIPENEM
     Indication: PRODUCT USED FOR UNKNOWN INDICATION
     Route: 065
     Dates: start: 201002

REACTIONS (6)
  - Neuropathy peripheral [Unknown]
  - Bursitis [Unknown]
  - Sepsis [Fatal]
  - Acute myocardial infarction [Unknown]
  - Pyoderma gangrenosum [Recovering/Resolving]
  - Systemic inflammatory response syndrome [Recovering/Resolving]

NARRATIVE: CASE EVENT DATE: 20100210
